FAERS Safety Report 12236605 (Version 1)
Quarter: 2016Q2

REPORT INFORMATION
  Report Type: Spontaneous
  Country: US (occurrence: US)
  Receive Date: 20160405
  Receipt Date: 20160405
  Transmission Date: 20160815
  Serious: Yes (Death, Other)
  Sender: FDA-Public Use
  Company Number: US-AMGEN-USASP2016040012

PATIENT
  Age: 73 Year
  Sex: Female

DRUGS (3)
  1. ENBREL [Suspect]
     Active Substance: ETANERCEPT
     Indication: PRODUCT USED FOR UNKNOWN INDICATION
     Dosage: 50 MG, ONCE WEEKLY ON THE SAME DAY OF THE WEEK
     Route: 058
     Dates: start: 20160224
  2. PAD [Concomitant]
     Dosage: UNK
  3. PROLIDA PATCH [Concomitant]
     Active Substance: LIDOCAINE\MENTHOL
     Dosage: UNK

REACTIONS (1)
  - Death [Fatal]

NARRATIVE: CASE EVENT DATE: 2016
